FAERS Safety Report 25902807 (Version 1)
Quarter: 2025Q4

REPORT INFORMATION
  Report Type: Spontaneous
  Country: US (occurrence: None)
  Receive Date: 20251009
  Receipt Date: 20251009
  Transmission Date: 20260118
  Serious: Yes (Other)
  Sender: FDA-CTU
  Company Number: None

PATIENT
  Age: 65 Year
  Sex: Female
  Weight: 77.85 kg

DRUGS (1)
  1. LEVAQUIN [Suspect]
     Active Substance: LEVOFLOXACIN

REACTIONS (9)
  - Hypoaesthesia [None]
  - Muscle tightness [None]
  - Neuropathy peripheral [None]
  - Therapy cessation [None]
  - Headache [None]
  - Nausea [None]
  - Anxiety [None]
  - Neuropathy vitamin B12 deficiency [None]
  - Blood magnesium decreased [None]

NARRATIVE: CASE EVENT DATE: 20250821
